FAERS Safety Report 21928819 (Version 1)
Quarter: 2023Q1

REPORT INFORMATION
  Report Type: Spontaneous
  Country: RU (occurrence: RU)
  Receive Date: 20230131
  Receipt Date: 20230131
  Transmission Date: 20230418
  Serious: Yes (Other)
  Sender: FDA-Public Use
  Company Number: None

PATIENT
  Age: 68 Year
  Sex: Female
  Weight: 61 kg

DRUGS (3)
  1. FIASP [Suspect]
     Active Substance: INSULIN ASPART
     Indication: Type 2 diabetes mellitus
     Dosage: 20 IU
     Route: 058
     Dates: start: 20220530, end: 20221102
  2. INSULIN ASPART [Suspect]
     Active Substance: INSULIN ASPART
     Indication: Type 2 diabetes mellitus
     Dosage: 20 IU
     Route: 058
     Dates: start: 20221102, end: 20221105
  3. LEVEMIR [Concomitant]
     Active Substance: INSULIN DETEMIR
     Indication: Type 2 diabetes mellitus
     Dosage: 20 IU
     Route: 058
     Dates: start: 20050201

REACTIONS (2)
  - Mechanical urticaria [Recovered/Resolved]
  - Rash maculo-papular [Recovered/Resolved]

NARRATIVE: CASE EVENT DATE: 20220605
